FAERS Safety Report 17921663 (Version 2)
Quarter: 2020Q2

REPORT INFORMATION
  Report Type: Report from Study
  Country: BR (occurrence: BR)
  Receive Date: 20200622
  Receipt Date: 20200629
  Transmission Date: 20200714
  Serious: Yes (Other)
  Sender: FDA-Public Use
  Company Number: BR-UCBSA-2020014243

PATIENT
  Age: 53 Year
  Sex: Female
  Weight: 64 kg

DRUGS (4)
  1. CERTOLIZUMAB PEGOL RA [Suspect]
     Active Substance: CERTOLIZUMAB PEGOL
     Indication: RHEUMATOID ARTHRITIS
     Dosage: 1 APPLICATION, MONTHLY (QM)
     Route: 058
     Dates: start: 201906, end: 20200525
  2. CYLOCORT [Concomitant]
     Indication: EYE INFECTION
     Dosage: 1 MILLIGRAM
     Route: 047
  3. LACRIFILM [Concomitant]
     Active Substance: CARBOXYMETHYLCELLULOSE SODIUM
     Indication: EYE INFECTION
     Dosage: 5 MILLIGRAM
     Route: 047
  4. VIGADEXA [DEXAMETHASONE PHOSPHATE;MOXIFLOXACIN HYDROCHLORIDE] [Concomitant]
     Indication: PRODUCT USED FOR UNKNOWN INDICATION
     Dosage: 5 MILLILITER, 2X/DAY (BID)
     Dates: end: 2020

REACTIONS (11)
  - Oropharyngeal pain [Recovering/Resolving]
  - Cough [Recovering/Resolving]
  - Arthralgia [Recovering/Resolving]
  - Productive cough [Not Recovered/Not Resolved]
  - Back pain [Not Recovered/Not Resolved]
  - Ear swelling [Recovering/Resolving]
  - Palpitations [Not Recovered/Not Resolved]
  - Eye infection [Recovered/Resolved]
  - Headache [Recovering/Resolving]
  - Immunodeficiency [Not Recovered/Not Resolved]
  - Rhinitis [Recovering/Resolving]

NARRATIVE: CASE EVENT DATE: 201906
